FAERS Safety Report 5947813-2 (Version None)
Quarter: 2008Q4

REPORT INFORMATION
  Report Type: 
  Country: None (occurrence: None)
  Receive Date: 20081107
  Receipt Date: 20081031
  Transmission Date: 20090506
  Serious: Yes (Other)
  Sender: FDA-Public Use
  Company Number: 20470

PATIENT
  Age: 60 Year
  Sex: Male

DRUGS (2)
  1. LEUCOVORIN. MFR: MAYNE [Suspect]
     Indication: DRUG USE FOR UNKNOWN INDICATION
     Dosage: 380 MG IV
     Route: 042
     Dates: start: 20081017, end: 20081017
  2. OXALIPLATIN [Suspect]
     Indication: DRUG USE FOR UNKNOWN INDICATION
     Dosage: 120 MG IV
     Route: 042
     Dates: start: 20081017, end: 20081017

REACTIONS (3)
  - COUGH [None]
  - ERYTHEMA [None]
  - ORAL DISCOMFORT [None]
